FAERS Safety Report 6148980-0 (Version None)
Quarter: 2009Q2

REPORT INFORMATION
  Report Type: 
  Country: None (occurrence: None)
  Receive Date: 20090408
  Receipt Date: 20081218
  Transmission Date: 20091009
  Serious: Yes (Life-Threatening, Other)
  Sender: FDA-Public Use
  Company Number: US-PFIZER INC-2008088620

PATIENT
  Sex: Male
  Weight: 100 kg

DRUGS (5)
  1. CHANTIX [Suspect]
     Dates: start: 20080901
  2. ETHANOL [Suspect]
  3. XANAX [Concomitant]
     Indication: ANXIETY
  4. LEXAPRO [Concomitant]
     Indication: ANXIETY
  5. TOPROL-XL [Concomitant]
     Indication: HYPERTENSION

REACTIONS (4)
  - ACCIDENT [None]
  - BLOOD ALCOHOL INCREASED [None]
  - LOSS OF CONSCIOUSNESS [None]
  - NO ADVERSE EVENT [None]
